FAERS Safety Report 25736022 (Version 1)
Quarter: 2025Q3

REPORT INFORMATION
  Report Type: Spontaneous
  Country: US (occurrence: None)
  Receive Date: 20250828
  Receipt Date: 20250828
  Transmission Date: 20251020
  Serious: No
  Sender: FDA-CTU
  Company Number: None

PATIENT
  Age: 44 Year
  Sex: Female

DRUGS (1)
  1. XOLAIR [Suspect]
     Active Substance: OMALIZUMAB
     Dosage: OTHER FREQUENCY : EVERY4WEEKS;?

REACTIONS (5)
  - Hypersensitivity [None]
  - Peripheral swelling [None]
  - Swelling [None]
  - Dysphonia [None]
  - Dyspnoea [None]
